FAERS Safety Report 4274762-0 (Version None)
Quarter: 2004Q1

REPORT INFORMATION
  Report Type: 
  Country: None (occurrence: None)
  Receive Date: 20040120
  Receipt Date: 20040120
  Transmission Date: 20041129
  Serious: No
  Sender: FDA-Public Use
  Company Number: None

PATIENT
  Sex: Male

DRUGS (3)
  1. INTERFERON ALFA 2B [Suspect]
     Indication: BONE NEOPLASM MALIGNANT
     Dosage: 3 TIMES/WEEK
     Dates: start: 20031208
  2. PROCRIT 40,000 UNITS [Suspect]
     Indication: BONE NEOPLASM MALIGNANT
     Dosage: ONCE/WEEK
     Dates: start: 20031208
  3. RIBAVIRIN [Suspect]

REACTIONS (3)
  - GINGIVAL DISORDER [None]
  - SKIN LESION [None]
  - SUBCUTANEOUS ABSCESS [None]
